FAERS Safety Report 17362411 (Version 4)
Quarter: 2020Q3

REPORT INFORMATION
  Report Type: Report from Study
  Country: DE (occurrence: DE)
  Receive Date: 20200203
  Receipt Date: 20200706
  Transmission Date: 20201102
  Serious: Yes (Other)
  Sender: FDA-Public Use
  Company Number: DE-SHIRE-DE201929771

PATIENT

DRUGS (11)
  1. MAGNESIUM VERLA [MAGNESIUM] [Concomitant]
     Indication: BLOOD MAGNESIUM DECREASED
  2. PARATHYROID HORMONE [Suspect]
     Active Substance: PARATHYROID HORMONE
     Dosage: 75 MICROGRAM, 1X/DAY:QD
     Route: 058
     Dates: start: 20171023
  3. CALCIUM ACETATE. [Suspect]
     Active Substance: CALCIUM ACETATE
     Indication: HYPOPARATHYROIDISM
     Route: 065
  4. OSTEOTRIOL [Suspect]
     Active Substance: CALCITRIOL
     Indication: HYPOPARATHYROIDISM
     Route: 065
  5. SELINA [Concomitant]
     Active Substance: ETHINYL ESTRADIOL\LEVONORGESTREL
     Indication: CONTRACEPTION
  6. CALCIUM VERLA [Suspect]
     Active Substance: CALCIUM
     Indication: HYPOPARATHYROIDISM
     Route: 065
  7. CITALOPRAM [Concomitant]
     Active Substance: CITALOPRAM HYDROBROMIDE
     Indication: DEPRESSED MOOD
  8. PARATHYROID HORMONE [Suspect]
     Active Substance: PARATHYROID HORMONE
     Indication: HYPOPARATHYROIDISM
     Dosage: 100 MICROGRAM, 1X/DAY:QD
     Route: 058
     Dates: start: 20171023
  9. PARATHYROID HORMONE [Suspect]
     Active Substance: PARATHYROID HORMONE
     Dosage: 100 MICROGRAM, 1X/DAY:QD
     Route: 058
     Dates: start: 20171023
  10. L?THYROXIN [LEVOTHYROXINE] [Concomitant]
     Active Substance: LEVOTHYROXINE SODIUM
     Indication: THYROIDECTOMY
  11. VITAMIN B12 [Concomitant]
     Active Substance: CYANOCOBALAMIN
     Indication: VITAMIN B12 DEFICIENCY

REACTIONS (12)
  - Influenza [Recovered/Resolved]
  - Exposure during pregnancy [Recovered/Resolved]
  - Blood magnesium decreased [Not Recovered/Not Resolved]
  - Road traffic accident [Recovered/Resolved]
  - Foetal heart rate abnormal [Recovered/Resolved]
  - Hepatic enzyme increased [Not Recovered/Not Resolved]
  - Blood thyroid stimulating hormone decreased [Not Recovered/Not Resolved]
  - Post-traumatic neck syndrome [Recovered/Resolved]
  - Procedural haemorrhage [Recovered/Resolved]
  - Abortion spontaneous [Unknown]
  - Blood calcium increased [Recovered/Resolved]
  - Rhinitis [Recovered/Resolved]

NARRATIVE: CASE EVENT DATE: 20171023
